FAERS Safety Report 12028212 (Version 3)
Quarter: 2018Q3

REPORT INFORMATION
  Report Type: Report from Study
  Country: None (occurrence: US)
  Receive Date: 20160207
  Receipt Date: 20180915
  Transmission Date: 20181010
  Serious: Yes (Hospitalization, Other)
  Sender: FDA-Public Use
  Company Number: US-ABBVIE-15K-163-1494796-00

PATIENT
  Age: 63 Year
  Sex: Female
  Weight: 54.93 kg

DRUGS (13)
  1. CLARITIN [Concomitant]
     Active Substance: LORATADINE
     Indication: PRODUCT USED FOR UNKNOWN INDICATION
  2. LOSARTAN. [Concomitant]
     Active Substance: LOSARTAN
     Indication: PRODUCT USED FOR UNKNOWN INDICATION
  3. LEVOTHYROXINE. [Concomitant]
     Active Substance: LEVOTHYROXINE
     Indication: HYPOTHYROIDISM
  4. IMURAN [Concomitant]
     Active Substance: AZATHIOPRINE
     Indication: CROHN^S DISEASE
  5. OMEPRAZOLE. [Concomitant]
     Active Substance: OMEPRAZOLE
     Indication: GASTROOESOPHAGEAL REFLUX DISEASE
  6. LORATADINE. [Concomitant]
     Active Substance: LORATADINE
     Indication: HYPERSENSITIVITY
  7. REMICADE [Suspect]
     Active Substance: INFLIXIMAB
     Indication: DRUG SPECIFIC ANTIBODY PRESENT
     Route: 065
  8. IRON [Concomitant]
     Active Substance: IRON
     Indication: PRODUCT USED FOR UNKNOWN INDICATION
     Dosage: IRON INFUSION MONTHLY
  9. HUMIRA [Suspect]
     Active Substance: ADALIMUMAB
     Indication: CROHN^S DISEASE
     Route: 058
     Dates: start: 20150225, end: 2015
  10. HUMIRA [Suspect]
     Active Substance: ADALIMUMAB
     Route: 058
     Dates: start: 201603, end: 20161005
  11. HUMIRA [Suspect]
     Active Substance: ADALIMUMAB
     Route: 058
     Dates: end: 201601
  12. FOSAMAX [Concomitant]
     Active Substance: ALENDRONATE SODIUM
     Indication: PRODUCT USED FOR UNKNOWN INDICATION
  13. COZAAR [Concomitant]
     Active Substance: LOSARTAN POTASSIUM
     Indication: HYPERTENSION

REACTIONS (30)
  - Dehydration [Recovered/Resolved]
  - Laceration [Unknown]
  - Malabsorption [Recovered/Resolved]
  - Enteritis [Not Recovered/Not Resolved]
  - Rectal haemorrhage [Recovered/Resolved]
  - Rectal abscess [Recovered/Resolved]
  - Nausea [Recovered/Resolved]
  - Malnutrition [Not Recovered/Not Resolved]
  - Drug effect decreased [Not Recovered/Not Resolved]
  - Decreased appetite [Recovered/Resolved]
  - Bladder pain [Recovered/Resolved]
  - Starvation [Recovered/Resolved]
  - Acne [Recovering/Resolving]
  - Gastrointestinal pain [Recovering/Resolving]
  - Contusion [Unknown]
  - Drug ineffective [Unknown]
  - Vesical fistula [Recovered/Resolved]
  - Wound infection staphylococcal [Not Recovered/Not Resolved]
  - Drug specific antibody present [Not Recovered/Not Resolved]
  - Stoma site haemorrhage [Recovering/Resolving]
  - Procedural pain [Recovered/Resolved]
  - Blood potassium decreased [Recovered/Resolved]
  - Intestinal obstruction [Recovered/Resolved]
  - Vesical fistula [Unknown]
  - Road traffic accident [Unknown]
  - Crohn^s disease [Recovering/Resolving]
  - Colonic fistula [Recovered/Resolved]
  - Colonic fistula [Unknown]
  - Anaemia [Recovering/Resolving]
  - Gastrointestinal pain [Not Recovered/Not Resolved]

NARRATIVE: CASE EVENT DATE: 2015
